FAERS Safety Report 21691614 (Version 1)
Quarter: 2022Q4

REPORT INFORMATION
  Report Type: Report from Study
  Country: US (occurrence: US)
  Receive Date: 20221207
  Receipt Date: 20221207
  Transmission Date: 20230113
  Serious: No
  Sender: FDA-Public Use
  Company Number: US-JNJFOC-20221164676

PATIENT
  Sex: Male

DRUGS (1)
  1. IMBRUVICA [Suspect]
     Active Substance: IBRUTINIB
     Indication: Chronic lymphocytic leukaemia
     Route: 048
     Dates: start: 20180313, end: 20220914

REACTIONS (6)
  - Off label use [Unknown]
  - Fatigue [Unknown]
  - Contusion [Unknown]
  - Muscle spasms [Unknown]
  - Rash [Unknown]
  - Diarrhoea [Unknown]
